FAERS Safety Report 26122935 (Version 1)
Quarter: 2025Q4

REPORT INFORMATION
  Report Type: Spontaneous
  Country: CN (occurrence: CN)
  Receive Date: 20251204
  Receipt Date: 20251204
  Transmission Date: 20260118
  Serious: Yes (Hospitalization, Other)
  Sender: PFIZER
  Company Number: CN-PFIZER INC-PV202500141399

PATIENT
  Age: 62 Year
  Sex: Female
  Weight: 65.8 kg

DRUGS (3)
  1. ZYVOX [Suspect]
     Active Substance: LINEZOLID
     Indication: Cardiac failure
     Dosage: 600 MG, 1X/DAY
     Route: 048
     Dates: start: 20251031, end: 20251106
  2. ZYVOX [Suspect]
     Active Substance: LINEZOLID
     Indication: Staphylococcus test positive
  3. CEFAZOLIN [Concomitant]
     Active Substance: CEFAZOLIN
     Indication: Anti-infective therapy

REACTIONS (3)
  - Platelet count decreased [Recovering/Resolving]
  - Antibiotic level above therapeutic [Unknown]
  - Off label use [Unknown]

NARRATIVE: CASE EVENT DATE: 20251031
